FAERS Safety Report 7104855-1 (Version None)
Quarter: 2010Q4

REPORT INFORMATION
  Report Type: 
  Country: None (occurrence: None)
  Receive Date: 20101116
  Receipt Date: 20101112
  Transmission Date: 20110411
  Serious: Yes (Death, Life-Threatening)
  Sender: FDA-Public Use
  Company Number: US-ASTRAZENECA-2010SE50658

PATIENT
  Age: 8 Year
  Sex: Male
  Weight: 54.9 kg

DRUGS (11)
  1. SYMBICORT [Suspect]
     Indication: ASTHMA
     Dosage: 160/4.5 2 PUFFS BID
     Route: 055
     Dates: start: 20090529, end: 20101017
  2. VENTOLIN [Concomitant]
     Dosage: 2 PUFFS AS NEEDED
  3. SINGULAIR [Concomitant]
  4. ZYRTEC [Concomitant]
  5. PREVACID [Concomitant]
  6. ALBUTEROL [Concomitant]
     Dosage: AS NEEDED
  7. ATROVENT [Concomitant]
  8. ZANTAC [Concomitant]
     Dosage: AT NIGHT
  9. ZITHROMAX PROTOCOL [Concomitant]
  10. PROVENTIL [Concomitant]
  11. IMMUNOTHERAPY [Concomitant]

REACTIONS (2)
  - ASTHMA [None]
  - DEATH [None]
